FAERS Safety Report 16353767 (Version 3)
Quarter: 2019Q4

REPORT INFORMATION
  Report Type: Spontaneous
  Country: NL (occurrence: NL)
  Receive Date: 20190524
  Receipt Date: 20191029
  Transmission Date: 20200122
  Serious: Yes (Life-Threatening, Hospitalization, Other)
  Sender: FDA-Public Use
  Company Number: NL-GALDERMA-NL19030358

PATIENT
  Age: 47 Year
  Sex: Male

DRUGS (1)
  1. DOXYCYCLINE. [Suspect]
     Active Substance: DOXYCYCLINE
     Indication: LYME DISEASE
     Route: 048

REACTIONS (14)
  - Coagulation factor VII level decreased [Recovered/Resolved]
  - Vitamin B12 deficiency [Unknown]
  - Folate deficiency [Unknown]
  - Haematuria [Recovered/Resolved]
  - Normocytic anaemia [Recovered/Resolved]
  - Spontaneous haematoma [Recovered/Resolved]
  - Hypoalbuminaemia [Unknown]
  - Condition aggravated [Recovered/Resolved]
  - Coagulation factor V level decreased [Recovered/Resolved]
  - Dysbiosis [Recovered/Resolved]
  - Intentional product use issue [Recovered/Resolved]
  - Activated partial thromboplastin time prolonged [Recovered/Resolved]
  - Vitamin K deficiency [Recovered/Resolved]
  - Underweight [Unknown]
